FAERS Safety Report 9540468 (Version 1)
Quarter: 2013Q3

REPORT INFORMATION
  Report Type: Spontaneous
  Country: US (occurrence: US)
  Receive Date: 20130920
  Receipt Date: 20130920
  Transmission Date: 20140515
  Serious: No
  Sender: FDA-Public Use
  Company Number: US-BAYER-2013-114233

PATIENT
  Age: 77 Year
  Sex: Female
  Weight: 71.2 kg

DRUGS (2)
  1. ALEVE CAPLET [Suspect]
     Indication: ANALGESIC THERAPY
     Dosage: 1 DF, QD
     Route: 048
     Dates: start: 201308, end: 20130916
  2. LOSARTAN [Concomitant]

REACTIONS (2)
  - Abdominal pain upper [Recovered/Resolved]
  - Incorrect drug administration duration [None]
